FAERS Safety Report 6497372-3 (Version None)
Quarter: 2009Q4

REPORT INFORMATION
  Report Type: 
  Country: None (occurrence: None)
  Receive Date: 20091215
  Receipt Date: 20091021
  Transmission Date: 20100525
  Serious: No
  Sender: FDA-Public Use
  Company Number: A0812782A

PATIENT
  Age: 83 Year
  Sex: Male

DRUGS (7)
  1. AVODART [Suspect]
     Dosage: .5MG PER DAY
     Route: 048
     Dates: start: 20080101, end: 20090901
  2. SPIRIVA [Concomitant]
  3. FORADIL [Concomitant]
  4. CLARINEX [Concomitant]
  5. SINGULAIR [Concomitant]
  6. XOPENEX [Concomitant]
  7. TRIAMTERENE AND HYDROCHLOROTHIAZIDE [Concomitant]

REACTIONS (1)
  - BREAST TENDERNESS [None]
